FAERS Safety Report 7361870-0 (Version None)
Quarter: 2011Q1

REPORT INFORMATION
  Report Type: 
  Country: None (occurrence: None)
  Receive Date: 20110315
  Receipt Date: 20110315
  Transmission Date: 20110831
  Serious: Yes (Life-Threatening, Hospitalization, Other)
  Sender: FDA-Public Use
  Company Number: None

PATIENT
  Sex: Male
  Weight: 102.7 kg

DRUGS (2)
  1. DAPTOMYCIN [Suspect]
     Indication: CELLULITIS STAPHYLOCOCCAL
     Dosage: DAPTOMYCIN IV
     Route: 042
     Dates: start: 20110120, end: 20110201
  2. PLAVIX [Concomitant]

REACTIONS (2)
  - INTERSTITIAL LUNG DISEASE [None]
  - EOSINOPHILIA [None]
